FAERS Safety Report 9193635 (Version 1)
Quarter: 2013Q1

REPORT INFORMATION
  Report Type: Spontaneous
  Country: US (occurrence: None)
  Receive Date: 20130325
  Receipt Date: 20130325
  Transmission Date: 20140127
  Serious: Yes (Other)
  Sender: FDA-Public Use
  Company Number: None

PATIENT
  Age: 65 Year
  Sex: Male

DRUGS (1)
  1. METFORMIN [Suspect]
     Indication: DIABETES MELLITUS
     Dosage: 1 TABLET BID PO
     Route: 048
     Dates: start: 20120308, end: 20120830

REACTIONS (4)
  - Product odour abnormal [None]
  - Abdominal discomfort [None]
  - Product quality issue [None]
  - Product substitution issue [None]
